FAERS Safety Report 6871990-2 (Version None)
Quarter: 2010Q3

REPORT INFORMATION
  Report Type: 
  Country: None (occurrence: None)
  Receive Date: 20100723
  Receipt Date: 20100713
  Transmission Date: 20110219
  Serious: Yes (Other)
  Sender: FDA-Public Use
  Company Number: US-PFIZER INC-2010088154

PATIENT
  Sex: Female
  Weight: 104 kg

DRUGS (4)
  1. CHANTIX [Suspect]
     Indication: SMOKING CESSATION THERAPY
     Dosage: 0.5 MG, 1X/DAY
     Route: 048
     Dates: start: 20100709, end: 20100701
  2. CHANTIX [Suspect]
     Dosage: 0.5 MG, 2X/DAY
     Route: 048
     Dates: start: 20100712
  3. BUPROPION [Concomitant]
     Dosage: 150 MG, UNK
  4. HYZAAR [Concomitant]
     Indication: HYPERTENSION
     Dosage: 100/25 MG, UNK

REACTIONS (1)
  - HYPERTENSION [None]
